FAERS Safety Report 7163960 (Version 2)
Quarter: 2016Q2

REPORT INFORMATION
  Report Type: Report from Study
  Country: DE (occurrence: DE)
  Receive Date: 20091102
  Receipt Date: 20160505
  Transmission Date: 20160815
  Serious: Yes (Hospitalization)
  Sender: FDA-Public Use
  Company Number: DE-ELI_LILLY_AND_COMPANY-DE200910000332

PATIENT
  Sex: Female
  Weight: 90 kg

DRUGS (4)
  1. DEXAMETHASON                       /00016001/ [Concomitant]
     Active Substance: DEXAMETHASONE
     Indication: ADJUVANT THERAPY
     Dosage: 8 MG, UNK
     Route: 048
     Dates: start: 20090921
  2. GRANISETRON [Concomitant]
     Active Substance: GRANISETRON
     Indication: ADJUVANT THERAPY
     Dosage: 2 MG, UNK
     Route: 048
     Dates: start: 20090921, end: 20090922
  3. DOCETAXEL. [Suspect]
     Active Substance: DOCETAXEL
     Indication: BREAST CANCER
     Dosage: 150 MG, UNKNOWN
     Route: 042
     Dates: start: 20090921
  4. GEMCITABINE HYDROCHLORIDE. [Suspect]
     Active Substance: GEMCITABINE HYDROCHLORIDE
     Indication: BREAST CANCER
     Dosage: 2000 MG, UNKNOWN
     Route: 042
     Dates: start: 20090921

REACTIONS (1)
  - Orthostatic intolerance [Recovered/Resolved]

NARRATIVE: CASE EVENT DATE: 20090925
